FAERS Safety Report 15426808 (Version 1)
Quarter: 2018Q3

REPORT INFORMATION
  Report Type: Spontaneous
  Country: IT (occurrence: IT)
  Receive Date: 20180925
  Receipt Date: 20180925
  Transmission Date: 20181010
  Serious: Yes (Hospitalization)
  Sender: FDA-Public Use
  Company Number: IT-009507513-1707ITA001990

PATIENT
  Age: 85 Year
  Sex: Male

DRUGS (3)
  1. DILATREND [Concomitant]
     Active Substance: CARVEDILOL
     Indication: HYPERTENSION
     Route: 048
  2. PEMBROLIZUMAB. [Suspect]
     Active Substance: PEMBROLIZUMAB
     Indication: METASTATIC MALIGNANT MELANOMA
     Dosage: 156 MG, CYCLICAL
     Route: 042
     Dates: start: 20170419, end: 20170510
  3. EUDIGOX [Concomitant]
     Indication: MYOCARDIAL ISCHAEMIA

REACTIONS (2)
  - Pleural effusion [Recovered/Resolved with Sequelae]
  - Pneumonitis [Recovered/Resolved with Sequelae]

NARRATIVE: CASE EVENT DATE: 20170515
